FAERS Safety Report 6971040-3 (Version None)
Quarter: 2010Q3

REPORT INFORMATION
  Report Type: 
  Country: None (occurrence: None)
  Receive Date: 20100908
  Receipt Date: 20100903
  Transmission Date: 20110219
  Serious: Yes (Death)
  Sender: FDA-Public Use
  Company Number: US-GILEAD-2010-0030592

PATIENT
  Sex: Female
  Weight: 54.48 kg

DRUGS (8)
  1. LETAIRIS [Suspect]
     Indication: PULMONARY ARTERIAL HYPERTENSION
     Route: 048
     Dates: start: 20080325, end: 20100721
  2. FUROSEMIDE [Concomitant]
  3. AMLODIPINE [Concomitant]
  4. GABAPENTIN [Concomitant]
  5. GLYBURIDE [Concomitant]
  6. METFORMIN HCL [Concomitant]
  7. FERROUS SULFATE [Concomitant]
  8. ACETAMINOPHEN [Concomitant]

REACTIONS (1)
  - DEATH [None]
